FAERS Safety Report 5746797-X (Version None)
Quarter: 2008Q2

REPORT INFORMATION
  Report Type: 
  Country: None (occurrence: None)
  Receive Date: 20080522
  Receipt Date: 20080515
  Transmission Date: 20081010
  Serious: Yes (Death, Other)
  Sender: FDA-Public Use
  Company Number: US-PFIZER INC-2008025865

PATIENT
  Sex: Female

DRUGS (1)
  1. GLIPIZIDE [Suspect]
     Indication: BLOOD GLUCOSE ABNORMAL

REACTIONS (4)
  - DRUG INEFFECTIVE [None]
  - METASTASES TO LIVER [None]
  - PANCREATIC CARCINOMA [None]
  - PULMONARY HAEMORRHAGE [None]
